FAERS Safety Report 16157636 (Version 2)
Quarter: 2019Q2

REPORT INFORMATION
  Report Type: Spontaneous
  Country: JP (occurrence: JP)
  Receive Date: 20190404
  Receipt Date: 20190426
  Transmission Date: 20190711
  Serious: Yes (Hospitalization)
  Sender: FDA-Public Use
  Company Number: JP-ASTRAZENECA-2019SE51319

PATIENT
  Age: 88 Year
  Sex: Female

DRUGS (11)
  1. SEROQUEL [Suspect]
     Active Substance: QUETIAPINE FUMARATE
     Indication: RESTLESSNESS
     Route: 048
     Dates: start: 20190319, end: 20190319
  2. LANSOPRAZOLE. [Concomitant]
     Active Substance: LANSOPRAZOLE
     Route: 048
     Dates: start: 20160716
  3. PRIMOBOLAN-DEPOT [Concomitant]
     Active Substance: METHENOLONE ENANTHATE
     Dates: start: 20160716
  4. CALTAN [Concomitant]
     Active Substance: CALCIUM CARBONATE
     Dates: start: 2018
  5. SENNOSIDE [Concomitant]
     Active Substance: SENNOSIDES
     Route: 048
     Dates: start: 2018
  6. CAMOSTAT MESILATE [Concomitant]
     Active Substance: CAMOSTAT MESYLATE
     Route: 048
     Dates: start: 2018
  7. AMOBAN [Concomitant]
     Active Substance: ZOPICLONE
     Route: 048
     Dates: start: 20160716
  8. BAYASPIRIN [Concomitant]
     Active Substance: ASPIRIN
     Route: 048
     Dates: start: 20160716
  9. FRANDOL [Concomitant]
     Active Substance: ISOSORBIDE DINITRATE
  10. URSO [Concomitant]
     Active Substance: URSODIOL
     Route: 048
     Dates: start: 20160716
  11. THYRADIN [Concomitant]
     Active Substance: LEVOTHYROXINE
     Route: 048
     Dates: start: 20160716

REACTIONS (2)
  - Off label use [Unknown]
  - Sedation complication [Recovered/Resolved]

NARRATIVE: CASE EVENT DATE: 20190319
